FAERS Safety Report 7415029-9 (Version None)
Quarter: 2011Q2

REPORT INFORMATION
  Report Type: 
  Country: None (occurrence: None)
  Receive Date: 20110414
  Receipt Date: 20110407
  Transmission Date: 20111010
  Serious: Yes (Life-Threatening, Hospitalization)
  Sender: FDA-Public Use
  Company Number: JP-ROCHE-759934

PATIENT
  Sex: Female
  Weight: 49 kg

DRUGS (7)
  1. LOXONIN [Concomitant]
     Route: 048
     Dates: start: 20101112
  2. XELODA [Suspect]
     Indication: COLON CANCER METASTATIC
     Route: 048
     Dates: start: 20101122, end: 20110126
  3. VOLTAREN [Concomitant]
     Route: 054
     Dates: start: 20101112
  4. MAGMITT [Concomitant]
     Route: 048
     Dates: start: 20101122, end: 20110210
  5. PYRIDOXAL PHOSPHATE [Concomitant]
     Dosage: FORM: POWDERED MEDICINE
     Route: 048
     Dates: start: 20101122, end: 20110210
  6. AVASTIN [Suspect]
     Indication: COLON CANCER METASTATIC
     Route: 041
     Dates: start: 20101122, end: 20110126
  7. FERROUS CITRATE [Concomitant]
     Route: 048
     Dates: start: 20101122, end: 20110210

REACTIONS (2)
  - ILEUS [None]
  - INTESTINAL PERFORATION [None]
